FAERS Safety Report 25972748 (Version 1)
Quarter: 2025Q4

REPORT INFORMATION
  Report Type: Spontaneous
  Country: US (occurrence: US)
  Receive Date: 20251029
  Receipt Date: 20251029
  Transmission Date: 20260117
  Serious: Yes (Hospitalization)
  Sender: BOEHRINGER INGELHEIM
  Company Number: US-BoehringerIngelheim-2025-BI-103055

PATIENT
  Sex: Male

DRUGS (4)
  1. EMPAGLIFLOZIN [Suspect]
     Active Substance: EMPAGLIFLOZIN
     Indication: Type 2 diabetes mellitus
     Dosage: DAILY DOSE: 10 MILLIGRAM(S)
  2. CAR-T [Concomitant]
     Indication: COVID-19
  3. cyclophosphamide and fludarabine [Concomitant]
     Indication: COVID-19
  4. Dulaglutide Insulin [Concomitant]
     Indication: Type 2 diabetes mellitus

REACTIONS (2)
  - Euglycaemic diabetic ketoacidosis [Unknown]
  - Cytokine release syndrome [Unknown]
